FAERS Safety Report 5137526-1 (Version None)
Quarter: 2006Q4

REPORT INFORMATION
  Report Type: 
  Country: None (occurrence: None)
  Receive Date: 20061030
  Receipt Date: 20051115
  Transmission Date: 20070319
  Serious: No
  Sender: FDA-Public Use
  Company Number: US-GLAXOSMITHKLINE-A0582381A

PATIENT
  Age: 10 Year
  Sex: Female
  Weight: 30.5 kg

DRUGS (5)
  1. ADVAIR HFA [Suspect]
     Indication: ASTHMA
     Dosage: 100MG TWICE PER DAY
     Route: 055
     Dates: end: 20051109
  2. ALLEGRA-D 12 HOUR [Concomitant]
  3. ALBUTEROL [Concomitant]
  4. NASONEX [Concomitant]
  5. PEPCID AC [Concomitant]

REACTIONS (2)
  - BACTERIAL INFECTION [None]
  - MYALGIA [None]
